FAERS Safety Report 4589565-7 (Version None)
Quarter: 2005Q1

REPORT INFORMATION
  Report Type: 
  Country: None (occurrence: None)
  Receive Date: 20050223
  Receipt Date: 20050211
  Transmission Date: 20050727
  Serious: Yes (Other)
  Sender: FDA-Public Use
  Company Number: US-JNJFOC-20050203922

PATIENT
  Age: 12 Year
  Sex: Female

DRUGS (2)
  1. CONCERTA [Suspect]
     Dosage: TWO 27 MG TABLETS
     Route: 049
  2. INSULIN [Concomitant]

REACTIONS (2)
  - MOOD SWINGS [None]
  - SUICIDAL IDEATION [None]
